FAERS Safety Report 21776495 (Version 1)
Quarter: 2022Q4

REPORT INFORMATION
  Report Type: Report from Study
  Country: US (occurrence: US)
  Receive Date: 20221226
  Receipt Date: 20221226
  Transmission Date: 20230113
  Serious: Yes (Hospitalization)
  Sender: FDA-Public Use
  Company Number: US-ABBVIE-22K-163-4481097-00

PATIENT
  Sex: Female

DRUGS (2)
  1. RINVOQ [Suspect]
     Active Substance: UPADACITINIB
     Indication: Rheumatoid arthritis
     Dosage: START DATE: MAY 2022?STRENGTH: 15 MILLIGRAM
     Route: 048
     Dates: end: 2022
  2. RINVOQ [Suspect]
     Active Substance: UPADACITINIB
     Indication: Rheumatoid arthritis
     Route: 048
     Dates: start: 2022

REACTIONS (10)
  - Osteomyelitis [Not Recovered/Not Resolved]
  - Infection [Not Recovered/Not Resolved]
  - General physical condition abnormal [Unknown]
  - Osteomyelitis [Recovering/Resolving]
  - Impaired healing [Recovering/Resolving]
  - Pain [Not Recovered/Not Resolved]
  - Musculoskeletal stiffness [Recovering/Resolving]
  - Hand deformity [Not Recovered/Not Resolved]
  - Musculoskeletal stiffness [Unknown]
  - Rheumatoid arthritis [Unknown]

NARRATIVE: CASE EVENT DATE: 20220101
